FAERS Safety Report 7402743-4 (Version None)
Quarter: 2011Q2

REPORT INFORMATION
  Report Type: 
  Country: None (occurrence: None)
  Receive Date: 20110408
  Receipt Date: 20110404
  Transmission Date: 20111010
  Serious: Yes (Other)
  Sender: FDA-Public Use
  Company Number: JO-ROCHE-767359

PATIENT
  Age: 23 Year
  Sex: Male
  Weight: 65 kg

DRUGS (5)
  1. NEORAL [Concomitant]
     Indication: IMMUNOSUPPRESSION
     Route: 048
     Dates: start: 20100720
  2. VALCYTE [Suspect]
     Dosage: RECEIVED VALCYTE FOR 200 DAYS. FINISHED THE TREATMENT BY ONE WEEK.
     Route: 048
     Dates: start: 20100721, end: 20110215
  3. PREDNISONE [Concomitant]
     Indication: IMMUNOSUPPRESSION
     Route: 048
     Dates: start: 20100720, end: 20101020
  4. CELLCEPT [Concomitant]
     Indication: IMMUNOSUPPRESSION
     Route: 048
     Dates: start: 20100720
  5. PREDNISONE [Concomitant]
     Route: 048
     Dates: start: 20101021

REACTIONS (1)
  - CYTOMEGALOVIRUS COLITIS [None]
